FAERS Safety Report 15481083 (Version 1)
Quarter: 2018Q4

REPORT INFORMATION
  Report Type: Spontaneous
  Country: US (occurrence: US)
  Receive Date: 20181010
  Receipt Date: 20181010
  Transmission Date: 20190205
  Serious: No
  Sender: FDA-Public Use
  Company Number: US-SA-2018SA182374

PATIENT
  Sex: Female
  Weight: 162 kg

DRUGS (2)
  1. ASPERCREME NOS [Suspect]
     Active Substance: MENTHOL\TROLAMINE SALICYLATE
     Indication: NEUROPATHY PERIPHERAL
     Dosage: UNK UNK, BID
     Dates: start: 201805, end: 20180926
  2. ASPERCREME NOS [Suspect]
     Active Substance: MENTHOL\TROLAMINE SALICYLATE
     Indication: ARTHRITIS

REACTIONS (1)
  - Sneezing [Unknown]
